FAERS Safety Report 4823224-8 (Version None)
Quarter: 2005Q4

REPORT INFORMATION
  Report Type: 
  Country: None (occurrence: None)
  Receive Date: 20051107
  Receipt Date: 20051107
  Transmission Date: 20060501
  Serious: No
  Sender: FDA-Public Use
  Company Number: None

PATIENT
  Sex: Female
  Weight: 84.369 kg

DRUGS (1)
  1. OXYCONTIN [Suspect]
     Indication: NEUROFIBROMATOSIS
     Dosage: 80 MG PO BID
     Route: 048

REACTIONS (1)
  - DRUG INEFFECTIVE [None]
